FAERS Safety Report 8798246 (Version 1)
Quarter: 2012Q4

REPORT INFORMATION
  Report Type: Spontaneous
  Country: US (occurrence: None)
  Receive Date: 20120917
  Receipt Date: 20120917
  Transmission Date: 20130627
  Serious: No
  Sender: FDA-Public Use
  Company Number: None

PATIENT
  Age: 63 Year
  Sex: Male
  Weight: 82.1 kg

DRUGS (1)
  1. PITAVASTATIN [Suspect]
     Indication: HYPERLIPIDEMIA
     Dosage: 1 MG EVERY DAY PO
     Route: 048

REACTIONS (1)
  - Myalgia [None]
